FAERS Safety Report 5219331-0 (Version None)
Quarter: 2007Q1

REPORT INFORMATION
  Report Type: 
  Country: None (occurrence: None)
  Receive Date: 20061201
  Receipt Date: 20060728
  Transmission Date: 20070707
  Serious: No
  Sender: FDA-Public Use
  Company Number: 2006PV018427

PATIENT
  Age: 59 Year
  Sex: Female
  Weight: 102.0593 kg

DRUGS (4)
  1. BYETTA [Suspect]
     Indication: DRUG USE FOR UNKNOWN INDICATION
     Dosage: 10; 5 MCG; BID; SC
     Route: 058
     Dates: start: 20060501, end: 20060531
  2. BYETTA [Suspect]
     Indication: DRUG USE FOR UNKNOWN INDICATION
     Dosage: 10; 5 MCG; BID; SC
     Route: 058
     Dates: start: 20060601
  3. METFORMIN HCL [Concomitant]
  4. ACTOS [Concomitant]

REACTIONS (3)
  - BLOOD GLUCOSE INCREASED [None]
  - DECREASED APPETITE [None]
  - STRESS [None]
